FAERS Safety Report 26004919 (Version 1)
Quarter: 2025Q4

REPORT INFORMATION
  Report Type: Spontaneous
  Country: US (occurrence: US)
  Receive Date: 20251106
  Receipt Date: 20251106
  Transmission Date: 20260117
  Serious: No
  Sender: CURRAX PHARMACEUTICALS
  Company Number: US-CURRAX PHARMACEUTICALS LLC-US-2025CUR001215

PATIENT
  Age: 54 Year
  Sex: Female

DRUGS (1)
  1. CONTRAVE [Suspect]
     Active Substance: BUPROPION HYDROCHLORIDE\NALTREXONE HYDROCHLORIDE
     Indication: Product used for unknown indication
     Dosage: STRENGTH: 8/90 MG, UNKNOWN DOSE AND FREQUENCY
     Route: 048
     Dates: start: 202506, end: 20250614

REACTIONS (6)
  - Affective disorder [Unknown]
  - Anger [Unknown]
  - Chest discomfort [Unknown]
  - Depressed mood [Unknown]
  - Bedridden [Unknown]
  - Headache [Unknown]

NARRATIVE: CASE EVENT DATE: 20250601
